FAERS Safety Report 11366228 (Version 2)
Quarter: 2015Q4

REPORT INFORMATION
  Report Type: Report from Study
  Country: JP (occurrence: JP)
  Receive Date: 20150811
  Receipt Date: 20151009
  Transmission Date: 20160304
  Serious: Yes (Hospitalization)
  Sender: FDA-Public Use
  Company Number: JP-009507513-1508JPN004406

PATIENT
  Age: 78 Year
  Sex: Male
  Weight: 51.4 kg

DRUGS (14)
  1. JANUVIA [Suspect]
     Active Substance: SITAGLIPTIN PHOSPHATE
     Indication: TYPE 2 DIABETES MELLITUS
     Dosage: 12.5 MG, QD
     Route: 048
     Dates: start: 20140714
  2. MICARDIS [Concomitant]
     Active Substance: TELMISARTAN
     Indication: HYPERTENSION
     Dosage: 40 MG, BID, FORMULATION: POR
     Route: 048
     Dates: start: 20080831, end: 20150413
  3. MIRCERA [Concomitant]
     Active Substance: METHOXY POLYETHYLENE GLYCOL-EPOETIN BETA
     Indication: NEPHROGENIC ANAEMIA
     Dosage: 100 MICROGRAM, INTERVAL: 4 WEEK, DIVIDED DOSE FREQUENCY UNKNOWN
     Route: 051
     Dates: start: 20130520
  4. DIART [Concomitant]
     Active Substance: AZOSEMIDE
     Indication: CARDIAC FAILURE CONGESTIVE
     Dosage: 60 MG, QD, FORMULATION: POR
     Route: 048
     Dates: start: 20111003, end: 201502
  5. MEVALOTIN [Concomitant]
     Active Substance: PRAVASTATIN SODIUM
     Indication: DYSLIPIDAEMIA
     Dosage: 10 MG, QD, FORMULATION: POR
     Route: 048
     Dates: start: 20040224
  6. GLIMICRON [Concomitant]
     Active Substance: GLICLAZIDE
     Indication: TYPE 2 DIABETES MELLITUS
     Dosage: 40 MG, QD, FORMULATION: POR
     Route: 048
     Dates: start: 20140825
  7. NORVASC [Concomitant]
     Active Substance: AMLODIPINE BESYLATE
     Indication: HYPERTENSION
     Dosage: 2.5 MG, BID, FORMULATION: POR
     Route: 048
     Dates: start: 20030715, end: 201502
  8. ZYLORIC [Concomitant]
     Active Substance: ALLOPURINOL
     Indication: HYPERURICAEMIA
     Dosage: 100 MG, QD, FORMULATION: POR
     Route: 048
     Dates: start: 20040927
  9. LASIX [Concomitant]
     Active Substance: FUROSEMIDE
     Indication: HYPERTENSION
     Dosage: 80 MG, QD, FORMULATION: POR
     Route: 048
     Dates: start: 20030715
  10. WARFARIN POTASSIUM [Concomitant]
     Active Substance: WARFARIN POTASSIUM
     Indication: THROMBOSIS PROPHYLAXIS
     Dosage: 3.5 MG, QD, FORMULATION: POR
     Route: 048
     Dates: start: 20040203
  11. KAYEXALATE [Concomitant]
     Active Substance: SODIUM POLYSTYRENE SULFONATE
     Indication: HYPERKALAEMIA
     Dosage: 5 MG, BID, FORMULATION: POR
     Route: 048
     Dates: start: 20130520, end: 20150518
  12. FESIN [Concomitant]
     Active Substance: IRON SUCROSE
     Indication: NEPHROGENIC ANAEMIA
     Dosage: 40 MG, INTERVAL: 4 WEEK, DIVIDED DOSE FREQUENCY UNKNOWN
     Route: 051
     Dates: start: 20130930
  13. ADALAT CC [Concomitant]
     Active Substance: NIFEDIPINE
     Indication: HYPERTENSION
     Dosage: 10 MG, BID, FORMULATION: POR
     Route: 048
     Dates: start: 20111121, end: 201502
  14. DIGOSIN [Concomitant]
     Active Substance: DIGOXIN
     Indication: ATRIAL FIBRILLATION
     Dosage: 125 MICROGRAM, QD, FORMULATION: POR
     Route: 048
     Dates: start: 20040203, end: 201502

REACTIONS (3)
  - Myocardial infarction [Recovered/Resolved]
  - Peripheral arterial occlusive disease [Not Recovered/Not Resolved]
  - Dizziness [Recovering/Resolving]

NARRATIVE: CASE EVENT DATE: 201411
